FAERS Safety Report 5883132-0 (Version None)
Quarter: 2008Q3

REPORT INFORMATION
  Report Type: 
  Country: None (occurrence: None)
  Receive Date: 20080913
  Receipt Date: 20080829
  Transmission Date: 20090109
  Serious: No
  Sender: FDA-Public Use
  Company Number: US-ABBOTT-08P-163-0473907-00

PATIENT
  Sex: Male

DRUGS (5)
  1. HUMIRA [Suspect]
     Indication: PSORIASIS
     Route: 058
     Dates: start: 20070215, end: 20070614
  2. HUMIRA [Suspect]
     Route: 058
     Dates: start: 20070614, end: 20080314
  3. HUMIRA [Suspect]
     Route: 058
     Dates: start: 20080314, end: 20080428
  4. HUMIRA [Suspect]
     Route: 058
     Dates: start: 20080428
  5. TOPICAL STEROID CREAMS [Concomitant]
     Indication: PSORIASIS
     Route: 061

REACTIONS (2)
  - DRUG DOSE OMISSION [None]
  - PSORIASIS [None]
